FAERS Safety Report 6769961-X (Version None)
Quarter: 2010Q2

REPORT INFORMATION
  Report Type: 
  Country: None (occurrence: None)
  Receive Date: 20100615
  Receipt Date: 20100609
  Transmission Date: 20101027
  Serious: Yes (Life-Threatening)
  Sender: FDA-Public Use
  Company Number: B0660087A

PATIENT
  Age: 68 Year
  Sex: Male

DRUGS (4)
  1. ZOVIRAX [Suspect]
     Indication: VARICELLA
     Dosage: 750MG PER DAY
     Route: 042
     Dates: start: 20100607, end: 20100609
  2. PRIMOBOLAN [Concomitant]
     Indication: DRUG USE FOR UNKNOWN INDICATION
     Route: 065
     Dates: start: 20100101
  3. PYDOXAL [Concomitant]
     Indication: DRUG USE FOR UNKNOWN INDICATION
     Route: 065
     Dates: start: 20100101
  4. TAKEPRON [Concomitant]
     Indication: DRUG USE FOR UNKNOWN INDICATION
     Route: 048
     Dates: start: 20100101

REACTIONS (1)
  - RENAL FAILURE ACUTE [None]
